FAERS Safety Report 20684126 (Version 2)
Quarter: 2022Q2

REPORT INFORMATION
  Report Type: Spontaneous
  Country: AT (occurrence: None)
  Receive Date: 20220407
  Receipt Date: 20220422
  Transmission Date: 20220720
  Serious: Yes (Other)
  Sender: FDA-Public Use
  Company Number: 2022A131605

PATIENT
  Age: 58 Year
  Sex: Female

DRUGS (9)
  1. FULVESTRANT [Suspect]
     Active Substance: FULVESTRANT
     Indication: PIK3CA-activated mutation
     Dosage: UNK
     Route: 030
  2. FULVESTRANT [Suspect]
     Active Substance: FULVESTRANT
     Indication: Hormone receptor positive HER2 negative breast cancer
     Dosage: UNK
     Route: 030
  3. CAPECITABINE [Suspect]
     Active Substance: CAPECITABINE
     Indication: Hormone receptor positive HER2 negative breast cancer
     Dosage: 2000 MILLIGRAMS PER SQUARE METRE, DAILY (1000 MG/M2, BID (2 X A DAY)
     Route: 065
     Dates: start: 201907, end: 202203
  4. CAPECITABINE [Suspect]
     Active Substance: CAPECITABINE
     Indication: PIK3CA-activated mutation
     Dosage: 2000 MILLIGRAMS PER SQUARE METRE, DAILY (1000 MG/M2, BID (2 X A DAY)
     Route: 065
     Dates: start: 201907, end: 202203
  5. FASLODEX [Concomitant]
     Active Substance: FULVESTRANT
     Dates: start: 201905
  6. CARVEDILOL [Concomitant]
     Active Substance: CARVEDILOL
  7. EDOXABAN TOSYLATE [Concomitant]
     Active Substance: EDOXABAN TOSYLATE
     Indication: Thrombosis
  8. METFORMIN [Concomitant]
     Active Substance: METFORMIN HYDROCHLORIDE
  9. ABEMACICLIB [Concomitant]
     Active Substance: ABEMACICLIB
     Dates: start: 201905

REACTIONS (3)
  - Malignant neoplasm progression [Unknown]
  - PIK3CA-activated mutation [Unknown]
  - Hormone receptor positive HER2 negative breast cancer [Unknown]

NARRATIVE: CASE EVENT DATE: 20191209
